FAERS Safety Report 18657339 (Version 1)
Quarter: 2020Q4

REPORT INFORMATION
  Report Type: Spontaneous
  Country: CN (occurrence: CN)
  Receive Date: 20201224
  Receipt Date: 20201224
  Transmission Date: 20210114
  Serious: Yes (Other)
  Sender: FDA-Public Use
  Company Number: CN-ROCHE-2737337

PATIENT

DRUGS (1)
  1. OMALIZUMAB. [Suspect]
     Active Substance: OMALIZUMAB
     Indication: PRODUCT USED FOR UNKNOWN INDICATION
     Dosage: UNK
     Route: 065

REACTIONS (14)
  - Musculoskeletal chest pain [Unknown]
  - Chest discomfort [Unknown]
  - Dyspnoea [Unknown]
  - Eye swelling [Unknown]
  - Cough [Unknown]
  - Arthralgia [Unknown]
  - Abdominal discomfort [Unknown]
  - Eye pain [Unknown]
  - Oropharyngeal pain [Unknown]
  - Asphyxia [Unknown]
  - Muscle twitching [Unknown]
  - Nausea [Unknown]
  - Vomiting [Unknown]
  - Ocular hypertension [Unknown]
